FAERS Safety Report 5409774-4 (Version None)
Quarter: 2007Q3

REPORT INFORMATION
  Report Type: 
  Country: None (occurrence: None)
  Receive Date: 20070809
  Receipt Date: 20070730
  Transmission Date: 20080115
  Serious: Yes (Other)
  Sender: FDA-Public Use
  Company Number: US-ROCHE-443758

PATIENT
  Age: 61 Year
  Sex: Female

DRUGS (11)
  1. PEGASYS [Suspect]
     Route: 050
     Dates: start: 20051201, end: 20060602
  2. COPEGUS [Suspect]
     Route: 048
     Dates: start: 20060323, end: 20060608
  3. RIBAVIRIN (NON-ROCHE) [Suspect]
     Route: 048
     Dates: start: 20060101, end: 20060322
  4. RIBASPHERE [Suspect]
     Route: 048
     Dates: start: 20051201
  5. DOXEPIN HCL [Concomitant]
     Dosage: TAKEN AT NIGHT
     Route: 048
     Dates: start: 20060101
  6. AMOXICILLIN [Concomitant]
     Route: 048
     Dates: start: 20060101
  7. PRILOSEC [Concomitant]
     Route: 048
  8. PHENYLEPHRINE [Concomitant]
     Indication: COUGH
     Route: 048
     Dates: start: 20060101
  9. PROPOXYPHENE HYDROCHLORIDE [Concomitant]
     Indication: PAIN
     Dosage: STRENGTH = 100-650 MG
     Route: 048
  10. HYDROCODONE BITARTRATE [Concomitant]
     Indication: PAIN
     Dosage: STRENGTH = 7.5/650 MG TABLET
     Route: 048
  11. PROMETHAZINE [Concomitant]
     Indication: NAUSEA
     Dosage: TAKEN ALSO FOR VOMITING
     Route: 048

REACTIONS (6)
  - ALOPECIA [None]
  - ARTHRALGIA [None]
  - CARPAL TUNNEL SYNDROME [None]
  - FATIGUE [None]
  - JOINT SWELLING [None]
  - WEIGHT DECREASED [None]
